FAERS Safety Report 8082349-7 (Version None)
Quarter: 2012Q1

REPORT INFORMATION
  Report Type: 
  Country: None (occurrence: None)
  Receive Date: 20120127
  Receipt Date: 20110216
  Transmission Date: 20120608
  Serious: No
  Sender: FDA-Public Use
  Company Number: US-ABBOTT-11P-163-0705904-00

PATIENT
  Age: 20 Year
  Sex: Male

DRUGS (2)
  1. MERCAPTOPURINE [Concomitant]
     Indication: PRODUCT USED FOR UNKNOWN INDICATION
     Dosage: #5, 1 1/4 PILL
  2. HUMIRA [Suspect]
     Indication: CROHN'S DISEASE
     Dates: start: 20101001

REACTIONS (3)
  - SWELLING [None]
  - GAIT DISTURBANCE [None]
  - ERYTHEMA [None]
